FAERS Safety Report 23661689 (Version 1)
Quarter: 2024Q1

REPORT INFORMATION
  Report Type: Spontaneous
  Country: US (occurrence: US)
  Receive Date: 20240322
  Receipt Date: 20240322
  Transmission Date: 20240410
  Serious: Yes (Hospitalization, Other)
  Sender: FDA-Public Use
  Company Number: US-BAXTER-2024BAX015373

PATIENT
  Age: 65 Year
  Sex: Female

DRUGS (7)
  1. BENDAMUSTINE [Suspect]
     Active Substance: BENDAMUSTINE
     Indication: Marginal zone lymphoma recurrent
     Dosage: ONCE ON 90 MG/M2
     Route: 065
     Dates: start: 20230923
  2. RITUXIMAB [Concomitant]
     Active Substance: RITUXIMAB
     Indication: Marginal zone lymphoma recurrent
     Dosage: ONCE
     Route: 065
     Dates: start: 20230923
  3. HUMAN RED BLOOD CELL [Concomitant]
     Active Substance: HUMAN RED BLOOD CELL
     Indication: Transfusion
     Dosage: IN THE PREVIOUS TWO WEEKS
     Route: 065
  4. PLATELETS [Concomitant]
     Active Substance: HUMAN PLATELET, ALLOGENIC
     Indication: Transfusion
     Dosage: IN THE PREVIOUS TWO WEEKS
     Route: 065
  5. ZARXIO [Concomitant]
     Active Substance: FILGRASTIM-SNDZ
     Dosage: MAINTAINED A DAILY REGIMEN
     Route: 065
  6. CEFEPIME [Concomitant]
     Active Substance: CEFEPIME HYDROCHLORIDE
     Indication: Antibiotic therapy
     Dosage: BROAD-SPECTRUM ANTIBIOTICS
     Route: 065
  7. VANCOMYCIN [Concomitant]
     Active Substance: VANCOMYCIN
     Indication: Antibiotic therapy
     Dosage: BROAD-SPECTRUM ANTIBIOTICS
     Route: 065

REACTIONS (3)
  - Aplastic anaemia [Unknown]
  - Febrile neutropenia [Unknown]
  - Pancytopenia [Recovered/Resolved]
